FAERS Safety Report 14090994 (Version 3)
Quarter: 2017Q4

REPORT INFORMATION
  Report Type: Report from Study
  Country: NL (occurrence: NL)
  Receive Date: 20171016
  Receipt Date: 20171101
  Transmission Date: 20180321
  Serious: Yes (Hospitalization)
  Sender: FDA-Public Use
  Company Number: NL-ROCHE-2005226

PATIENT
  Age: 66 Year
  Sex: Female

DRUGS (7)
  1. 18F-FDG [Suspect]
     Active Substance: FLUDEOXYGLUCOSE
     Indication: MALIGNANT MELANOMA
     Route: 065
     Dates: start: 20170718, end: 20170821
  2. BENZBROMARON [Concomitant]
  3. AMOXICILLIN. [Concomitant]
     Active Substance: AMOXICILLIN
     Dosage: 625/250 MG
     Route: 065
     Dates: start: 20171015
  4. NEORAL [Concomitant]
     Active Substance: CYCLOSPORINE
     Dosage: BEFORE 2017
     Route: 065
  5. PREDNISOLONE. [Concomitant]
     Active Substance: PREDNISOLONE
     Dosage: BEFORE 2017
     Route: 065
  6. VEMURAFENIB. [Suspect]
     Active Substance: VEMURAFENIB
     Indication: MALIGNANT MELANOMA
     Route: 048
     Dates: start: 20170704, end: 20171014
  7. COBIMETINIB. [Suspect]
     Active Substance: COBIMETINIB
     Indication: MALIGNANT MELANOMA
     Route: 048
     Dates: start: 20170704, end: 20171004

REACTIONS (4)
  - Confusional state [Unknown]
  - Dehydration [Unknown]
  - Cystitis [Unknown]
  - Delirium [Unknown]

NARRATIVE: CASE EVENT DATE: 20171003
